FAERS Safety Report 19620917 (Version 1)
Quarter: 2021Q3

REPORT INFORMATION
  Report Type: Spontaneous
  Country: US (occurrence: US)
  Receive Date: 20210728
  Receipt Date: 20210728
  Transmission Date: 20211014
  Serious: Yes (Disabling)
  Sender: FDA-Public Use
  Company Number: None

PATIENT
  Age: 73 Year
  Sex: Female
  Weight: 75.6 kg

DRUGS (5)
  1. ACIPHEX [Concomitant]
     Active Substance: RABEPRAZOLE SODIUM
  2. VITAMINS [Concomitant]
     Active Substance: VITAMINS
  3. BELBUCA [Suspect]
     Active Substance: BUPRENORPHINE HYDROCHLORIDE
     Indication: PAIN
     Dosage: ?          QUANTITY:1 FILM;OTHER ROUTE:PLACE ON CHECK FOR 5 MINUTES UNTIL DISSO?
  4. LEVOTHYRYOXINE [Concomitant]
  5. CARDIZEM [Concomitant]
     Active Substance: DILTIAZEM HYDROCHLORIDE

REACTIONS (1)
  - Renal failure [None]

NARRATIVE: CASE EVENT DATE: 20210721
